FAERS Safety Report 6520034-0 (Version None)
Quarter: 2009Q4

REPORT INFORMATION
  Report Type: 
  Country: None (occurrence: None)
  Receive Date: 20091229
  Receipt Date: 20091218
  Transmission Date: 20100525
  Serious: Yes (Death)
  Sender: FDA-Public Use
  Company Number: JP-ROCHE-675674

PATIENT
  Age: 49 Year
  Sex: Male

DRUGS (5)
  1. TAMIFLU [Suspect]
     Indication: INFLUENZA
     Route: 048
     Dates: start: 20091026
  2. TAMIFLU [Suspect]
     Route: 048
     Dates: start: 20091124
  3. TAMIFLU [Suspect]
     Route: 048
     Dates: start: 20091214
  4. RELENZA [Concomitant]
     Dosage: DRUG: RELENZA(ZANAMIVIR HYDRATE).  ROUTE: RESPIRATORY (INHALATION).  DOSE FORM: INHALANT.
     Route: 055
     Dates: start: 20091105
  5. RELENZA [Concomitant]
     Route: 055
     Dates: start: 20091207

REACTIONS (2)
  - PATHOGEN RESISTANCE [None]
  - PNEUMONIA [None]
